FAERS Safety Report 15113565 (Version 1)
Quarter: 2018Q3

REPORT INFORMATION
  Report Type: Report from Study
  Country: JP (occurrence: JP)
  Receive Date: 20180706
  Receipt Date: 20180706
  Transmission Date: 20181010
  Serious: Yes (Hospitalization)
  Sender: FDA-Public Use
  Company Number: JP-ROCHE-2147631

PATIENT
  Age: 68 Year
  Sex: Female
  Weight: 46 kg

DRUGS (2)
  1. CAPECITABINE. [Suspect]
     Active Substance: CAPECITABINE
     Indication: GALLBLADDER CANCER
     Route: 048
     Dates: start: 20180518
  2. BLINDED VARLITINIB [Suspect]
     Active Substance: VARLITINIB
     Indication: GALLBLADDER CANCER
     Route: 048
     Dates: start: 20180518

REACTIONS (1)
  - Haemobilia [Recovered/Resolved]

NARRATIVE: CASE EVENT DATE: 20180608
